FAERS Safety Report 6942317-2 (Version None)
Quarter: 2010Q3

REPORT INFORMATION
  Report Type: 
  Country: None (occurrence: None)
  Receive Date: 20100819
  Receipt Date: 20100806
  Transmission Date: 20110219
  Serious: Yes (Hospitalization)
  Sender: FDA-Public Use
  Company Number: IDA-00412

PATIENT
  Sex: Female

DRUGS (1)
  1. PROPRANOLOL [Suspect]
     Indication: HAEMANGIOMA
     Dosage: SEE IMAGE
     Route: 048

REACTIONS (7)
  - CONDITION AGGRAVATED [None]
  - DRUG INEFFECTIVE FOR UNAPPROVED INDICATION [None]
  - HAEMANGIOMA [None]
  - LARYNGEAL DISORDER [None]
  - LARYNGEAL OBSTRUCTION [None]
  - OXYGEN SATURATION DECREASED [None]
  - TREATMENT FAILURE [None]
